FAERS Safety Report 4448658-5 (Version None)
Quarter: 2004Q3

REPORT INFORMATION
  Report Type: 
  Country: None (occurrence: None)
  Receive Date: 20040909
  Receipt Date: 20040824
  Transmission Date: 20050211
  Serious: Yes (Hospitalization)
  Sender: FDA-Public Use
  Company Number: DSA_24879_2004

PATIENT
  Age: 26 Year
  Sex: Male

DRUGS (2)
  1. TAVOR [Suspect]
     Dosage: 8 MG ONCE PO
     Route: 048
     Dates: start: 20040819, end: 20040819
  2. ZYPREXA [Suspect]
     Dosage: 35 MG ONCE PO
     Route: 048
     Dates: start: 20040819, end: 20040819

REACTIONS (5)
  - DYSARTHRIA [None]
  - EYELID PTOSIS [None]
  - MULTIPLE DRUG OVERDOSE INTENTIONAL [None]
  - SOMNOLENCE [None]
  - TACHYCARDIA [None]
